FAERS Safety Report 8965829 (Version 1)
Quarter: 2012Q4

REPORT INFORMATION
  Report Type: 
  Country: TR (occurrence: TR)
  Receive Date: 20121214
  Receipt Date: 20121214
  Transmission Date: 20130627
  Serious: Yes (Hospitalization)
  Sender: FDA-Public Use
  Company Number: TR-MYLANLABS-2012S1024847

PATIENT
  Age: 49 Year
  Sex: Male

DRUGS (2)
  1. AZATHIOPRINE [Suspect]
     Indication: PEMPHIGUS
     Route: 065
  2. PREDNISOLONE [Suspect]
     Indication: PEMPHIGUS
     Route: 065

REACTIONS (3)
  - Splenic abscess [Recovered/Resolved]
  - Pancytopenia [Unknown]
  - Sepsis [Unknown]
